FAERS Safety Report 5252159-4 (Version None)
Quarter: 2007Q1

REPORT INFORMATION
  Report Type: 
  Country: None (occurrence: None)
  Receive Date: 20070226
  Receipt Date: 20070215
  Transmission Date: 20070707
  Serious: Yes (Hospitalization)
  Sender: FDA-Public Use
  Company Number: MC200700150

PATIENT
  Age: 60 Year
  Sex: Male
  Weight: 108 kg

DRUGS (4)
  1. ANGIOMAX [Suspect]
     Indication: PERCUTANEOUS CORONARY INTERVENTION
     Dosage: 16ML,BOLUS, IV BOLUS
     Route: 040
     Dates: start: 20070209, end: 20070209
  2. ANGIOMAX [Suspect]
     Indication: PERCUTANEOUS CORONARY INTERVENTION
     Dosage: 37 ML, HR INTRAVENOUS
     Route: 042
     Dates: start: 20070209, end: 20070209
  3. INVESTIGATIONAL DRUG [Suspect]
     Indication: PERCUTANEOUS CORONARY INTERVENTION
     Dosage: 8 ML, BOLUS, IV BOLUS
     Route: 040
     Dates: start: 20070209, end: 20070209
  4. INVESTIGATIONAL DRUG #2 [Suspect]
     Indication: PERCUTANEOUS CORONARY INTERVENTION
     Dosage: 64.2 ML, HR, INTRAVENOUS
     Route: 042
     Dates: start: 20070209, end: 20070209

REACTIONS (4)
  - CEREBROVASCULAR ACCIDENT [None]
  - EYE MOVEMENT DISORDER [None]
  - GINGIVAL BLEEDING [None]
  - POST PROCEDURAL COMPLICATION [None]
